FAERS Safety Report 5546071-0 (Version None)
Quarter: 2007Q4

REPORT INFORMATION
  Report Type: 
  Country: None (occurrence: None)
  Receive Date: 20071211
  Receipt Date: 20070920
  Transmission Date: 20080405
  Serious: No
  Sender: FDA-Public Use
  Company Number: US-BRISTOL-MYERS SQUIBB COMPANY-13915624

PATIENT
  Sex: Male

DRUGS (1)
  1. EMSAM [Suspect]

REACTIONS (3)
  - ANXIETY [None]
  - INSOMNIA [None]
  - IRRITABILITY [None]
